FAERS Safety Report 8853289 (Version 3)
Quarter: 2013Q2

REPORT INFORMATION
  Report Type: Report from Study
  Country: DE (occurrence: DE)
  Receive Date: 20121022
  Receipt Date: 20130408
  Transmission Date: 20140414
  Serious: Yes (Other)
  Sender: FDA-Public Use
  Company Number: DE-PFIZER INC-2012257667

PATIENT
  Age: 49 Year
  Sex: Male
  Weight: 90 kg

DRUGS (3)
  1. GENOTROPIN [Suspect]
     Dosage: 0.2 MG, 7/WK
     Route: 058
     Dates: start: 20041202
  2. HYDROCORTISONE [Concomitant]
     Indication: BLOOD CORTICOTROPHIN DECREASED
     Dosage: UNK
     Dates: start: 19970618
  3. VIGANTOLETTEN ^BAYER^ [Concomitant]
     Indication: VITAMIN D DEFICIENCY
     Dosage: UNK
     Dates: start: 20020823

REACTIONS (7)
  - Hyperventilation [Unknown]
  - Adrenocortical insufficiency acute [Unknown]
  - Vertigo [Unknown]
  - Headache [Unknown]
  - Loss of consciousness [Unknown]
  - Hyperhidrosis [Unknown]
  - Pallor [Unknown]
